FAERS Safety Report 20611697 (Version 1)
Quarter: 2022Q1

REPORT INFORMATION
  Report Type: Spontaneous
  Country: FR (occurrence: FR)
  Receive Date: 20220318
  Receipt Date: 20220318
  Transmission Date: 20220423
  Serious: Yes (Hospitalization)
  Sender: FDA-Public Use
  Company Number: None

PATIENT
  Age: 81 Year
  Sex: Female

DRUGS (4)
  1. SPIRONOLACTONE [Suspect]
     Active Substance: SPIRONOLACTONE
     Indication: Hypertension
     Dosage: 12.5MG,THERAPY START DATE ASKU
     Route: 048
     Dates: end: 20220214
  2. IBRANCE [Suspect]
     Active Substance: PALBOCICLIB
     Indication: Breast cancer
     Dosage: IBRANCE 75 MG, CAPSULE,THERAPY START DATE ASKU
     Route: 048
     Dates: end: 20220215
  3. TRAMADOL [Suspect]
     Active Substance: TRAMADOL
     Indication: Pain
     Dosage: IF NECESSARY, 150MG,THERAPY START DATE ASKU,TRAMADOL ARROW 50 MG,TABLETS
     Route: 048
     Dates: end: 20220215
  4. PERINDOPRIL [Concomitant]
     Active Substance: PERINDOPRIL
     Dosage: 2MG,THERAPY START DATE ASKU
     Route: 048
     Dates: end: 20220214

REACTIONS (1)
  - Inappropriate antidiuretic hormone secretion [Recovered/Resolved]

NARRATIVE: CASE EVENT DATE: 20211201
